FAERS Safety Report 14983723 (Version 1)
Quarter: 2018Q2

REPORT INFORMATION
  Report Type: Spontaneous
  Country: US (occurrence: US)
  Receive Date: 20180517
  Receipt Date: 20180517
  Transmission Date: 20180711
  Serious: Yes (Death)
  Sender: FDA-Public Use
  Company Number: None

PATIENT
  Age: 92 Year
  Sex: Male

DRUGS (12)
  1. LORATADINE 10 MG [Concomitant]
     Active Substance: LORATADINE
     Dates: start: 20180118, end: 20180501
  2. AMOX/K CLAV 500-125MG [Concomitant]
     Dates: start: 20180412, end: 20180422
  3. LORAZEPAM 0.5 MG [Concomitant]
     Active Substance: LORAZEPAM
     Dates: start: 20180430, end: 20180501
  4. FUROSEMIDE 40 MG [Concomitant]
     Active Substance: FUROSEMIDE
     Dates: start: 20180421, end: 20180501
  5. DICLOFENAC GEL 1% [Concomitant]
     Active Substance: DICLOFENAC
     Dates: start: 20180314, end: 20180501
  6. HYOSCYAMINE SUB 0.125 MG [Concomitant]
     Dates: start: 20180430, end: 20180501
  7. AMLODIPINE 2.5 MG [Concomitant]
     Active Substance: AMLODIPINE BESYLATE
     Dates: start: 20170802, end: 20180501
  8. FLUOXETINE 10 MG [Concomitant]
     Active Substance: FLUOXETINE HYDROCHLORIDE
     Dates: start: 20180316, end: 20180501
  9. ATORVASTATIN 10 MG [Concomitant]
     Active Substance: ATORVASTATIN
     Dates: start: 20180228, end: 20180501
  10. XTANDI [Suspect]
     Active Substance: ENZALUTAMIDE
     Indication: PROSTATE CANCER
     Route: 048
     Dates: start: 20171110, end: 20180501
  11. GABAPENTIN 100 MG [Concomitant]
     Active Substance: GABAPENTIN
     Dates: start: 20180421, end: 20180501
  12. POTASSIUM CHLORIDE 10 MEQ [Concomitant]
     Active Substance: POTASSIUM CHLORIDE
     Dates: start: 20170905, end: 20180501

REACTIONS (1)
  - Death [None]

NARRATIVE: CASE EVENT DATE: 20180501
